FAERS Safety Report 9473834 (Version 1)
Quarter: 2013Q3

REPORT INFORMATION
  Report Type: Spontaneous
  Country: US (occurrence: US)
  Receive Date: 20130823
  Receipt Date: 20130823
  Transmission Date: 20140515
  Serious: No
  Sender: FDA-Public Use
  Company Number: US-BRISTOL-MYERS SQUIBB COMPANY-17029158

PATIENT
  Age: 62 Year
  Sex: Female

DRUGS (10)
  1. SPRYCEL (CML) TABS 50 MG [Suspect]
     Indication: CHRONIC MYELOID LEUKAEMIA
  2. LIPITOR [Concomitant]
  3. PLAVIX [Concomitant]
  4. ASPIRIN [Concomitant]
  5. POTASSIUM [Concomitant]
  6. LASIX [Concomitant]
  7. LANTUS [Concomitant]
  8. HUMALOG [Concomitant]
  9. COLCHICINE [Concomitant]
  10. TOPROL XL [Concomitant]

REACTIONS (3)
  - Weight increased [Unknown]
  - Diarrhoea [Recovering/Resolving]
  - Fluid retention [Unknown]
